FAERS Safety Report 17299912 (Version 1)
Quarter: 2020Q1

REPORT INFORMATION
  Report Type: Spontaneous
  Country: US (occurrence: US)
  Receive Date: 20200103
  Receipt Date: 20200103
  Transmission Date: 20200409
  Serious: Yes (Hospitalization, Disabling, Other)
  Sender: FDA-Public Use
  Company Number: None

PATIENT
  Age: 38 Year
  Sex: Female

DRUGS (1)
  1. WARFARIN SODIUM GENERIC FOR COUMADIN [Suspect]
     Active Substance: WARFARIN SODIUM
     Indication: THROMBOSIS
     Dosage: ?          QUANTITY:2 TABLETS DAILY;?
     Dates: start: 20141206, end: 20151209

REACTIONS (5)
  - Haemorrhage [None]
  - Intestinal haemorrhage [None]
  - Haematemesis [None]
  - Thrombosis [None]
  - Blindness [None]

NARRATIVE: CASE EVENT DATE: 20151204
